FAERS Safety Report 6620089-9 (Version None)
Quarter: 2010Q1

REPORT INFORMATION
  Report Type: 
  Country: None (occurrence: None)
  Receive Date: 20100308
  Receipt Date: 20100308
  Transmission Date: 20100710
  Serious: No
  Sender: FDA-Public Use
  Company Number: None

PATIENT

DRUGS (2)
  1. REGLAN [Suspect]
  2. HELPARIN [Suspect]

REACTIONS (1)
  - NONSPECIFIC REACTION [None]
